FAERS Safety Report 7773159-6 (Version None)
Quarter: 2011Q3

REPORT INFORMATION
  Report Type: 
  Country: None (occurrence: None)
  Receive Date: 20110922
  Receipt Date: 20110113
  Transmission Date: 20111222
  Serious: Yes (Hospitalization)
  Sender: FDA-Public Use
  Company Number: US-ASTRAZENECA-2011SE02633

PATIENT
  Age: 22 Year
  Sex: Male

DRUGS (2)
  1. SEROQUEL XR [Suspect]
     Indication: BIPOLAR I DISORDER
     Route: 048
     Dates: start: 20110101, end: 20110101
  2. SYMBYAX [Concomitant]
     Route: 048
     Dates: start: 20110101, end: 20110101

REACTIONS (1)
  - SUICIDAL IDEATION [None]
